FAERS Safety Report 23794246 (Version 2)
Quarter: 2024Q2

REPORT INFORMATION
  Report Type: Spontaneous
  Country: CA (occurrence: CA)
  Receive Date: 20240429
  Receipt Date: 20240529
  Transmission Date: 20240716
  Serious: No
  Sender: FDA-Public Use
  Company Number: CA-PFIZER INC-PV202400052063

PATIENT
  Age: 36 Year
  Sex: Female
  Weight: 99.8 kg

DRUGS (3)
  1. FRAGMIN [Suspect]
     Active Substance: DALTEPARIN SODIUM
     Indication: Deep vein thrombosis
     Dosage: 7500 IU, 1X/DAY
     Route: 058
     Dates: start: 20240412, end: 20240425
  2. ACETAMINOPHEN [Concomitant]
     Active Substance: ACETAMINOPHEN
     Indication: Analgesic therapy
     Dosage: 500 MG, 4X/DAY, AS NEEDED
  3. NAPROXEN [Concomitant]
     Active Substance: NAPROXEN
     Indication: Analgesic therapy
     Dosage: 500 MG, 2X/DAY, AS NEEDED

REACTIONS (1)
  - Syringe issue [Unknown]

NARRATIVE: CASE EVENT DATE: 20240416
